FAERS Safety Report 6792520-X (Version None)
Quarter: 2010Q2

REPORT INFORMATION
  Report Type: 
  Country: None (occurrence: None)
  Receive Date: 20100624
  Receipt Date: 20080805
  Transmission Date: 20101027
  Serious: No
  Sender: FDA-Public Use
  Company Number: US-PFIZER INC-2008065780

PATIENT
  Age: 26 Year
  Sex: Female
  Weight: 41.818 kg

DRUGS (2)
  1. GEODON [Suspect]
     Indication: AUTISM
  2. KLONOPIN [Concomitant]

REACTIONS (5)
  - DISORIENTATION [None]
  - FEELING COLD [None]
  - INCORRECT DOSE ADMINISTERED [None]
  - POOR QUALITY SLEEP [None]
  - TREMOR [None]
